FAERS Safety Report 5878447-6 (Version None)
Quarter: 2008Q3

REPORT INFORMATION
  Report Type: 
  Country: None (occurrence: None)
  Receive Date: 20080911
  Receipt Date: 20070924
  Transmission Date: 20090109
  Serious: No
  Sender: FDA-Public Use
  Company Number: US-AMGEN-KDL244642

PATIENT
  Sex: Female

DRUGS (5)
  1. NEUPOGEN [Suspect]
     Indication: NEUTROPENIA
     Dates: start: 20070901
  2. NORCO [Concomitant]
  3. RIBAVIRIN AND INTERFERON ALFA-2B [Concomitant]
     Dates: start: 20070301
  4. PRILOSEC [Concomitant]
  5. INTERFERON [Concomitant]

REACTIONS (3)
  - INJECTION SITE IRRITATION [None]
  - MUSCULOSKELETAL PAIN [None]
  - PAIN IN EXTREMITY [None]
